FAERS Safety Report 5099255-2 (Version None)
Quarter: 2006Q3

REPORT INFORMATION
  Report Type: 
  Country: None (occurrence: None)
  Receive Date: 20060731
  Receipt Date: 20050824
  Transmission Date: 20061208
  Serious: Yes (Other)
  Sender: FDA-Public Use
  Company Number: US-2005-008973

PATIENT
  Age: 24 Year
  Sex: Female
  Weight: 66.7 kg

DRUGS (1)
  1. MAGNEVIST [Suspect]
     Indication: NUCLEAR MAGNETIC RESONANCE IMAGING BRAIN
     Dosage: 15 ML, 1 DOSE, INTRAVENOUS
     Route: 042
     Dates: start: 20050521, end: 20050521

REACTIONS (3)
  - DYSPNOEA [None]
  - FEELING ABNORMAL [None]
  - PAIN [None]
